FAERS Safety Report 8625446-7 (Version None)
Quarter: 2012Q3

REPORT INFORMATION
  Report Type: 
  Country: None (occurrence: None)
  Receive Date: 20120827
  Receipt Date: 20120816
  Transmission Date: 20120928
  Serious: Yes (Other)
  Sender: FDA-Public Use
  Company Number: US-MYLANLABS-2012S1016909

PATIENT
  Age: 55 Year
  Sex: Female
  Weight: 56.7 kg

DRUGS (7)
  1. ATENOLOL [Suspect]
     Indication: SYNCOPE
     Route: 048
     Dates: start: 20110101
  2. LANTUS [Concomitant]
     Indication: DIABETES MELLITUS
     Route: 058
     Dates: start: 20080101
  3. BETHANECHOL [Concomitant]
     Dates: start: 20120101
  4. VICODIN [Concomitant]
     Indication: PAIN
     Dates: start: 20070101
  5. GABAPENTIN [Concomitant]
     Indication: NERVE INJURY
     Dates: start: 20040101
  6. NOVOLOG [Concomitant]
     Indication: DIABETES MELLITUS
  7. CLEARLAX [Concomitant]
     Indication: CONSTIPATION

REACTIONS (5)
  - DRUG EFFECT DECREASED [None]
  - SYNCOPE [None]
  - NECK PAIN [None]
  - WRONG TECHNIQUE IN DRUG USAGE PROCESS [None]
  - DYSPNOEA [None]
